FAERS Safety Report 25473335 (Version 1)
Quarter: 2025Q2

REPORT INFORMATION
  Report Type: Spontaneous
  Country: TH (occurrence: TH)
  Receive Date: 20250624
  Receipt Date: 20250624
  Transmission Date: 20250717
  Serious: Yes (Hospitalization)
  Sender: PFIZER
  Company Number: TH-PFIZER INC-PV202500074971

PATIENT
  Age: 63 Year
  Sex: Female

DRUGS (2)
  1. LORLATINIB [Suspect]
     Active Substance: LORLATINIB
     Indication: Non-small cell lung cancer
     Dosage: 100 MG (1 TAB) A DAY
     Route: 048
     Dates: start: 20241204
  2. LORLATINIB [Suspect]
     Active Substance: LORLATINIB
     Dosage: 75 MG (25 MG 3 TABS) 1 TIME A DAY
     Route: 048
     Dates: start: 202502

REACTIONS (4)
  - Intestinal obstruction [Not Recovered/Not Resolved]
  - Peripheral swelling [Not Recovered/Not Resolved]
  - Slow speech [Not Recovered/Not Resolved]
  - Abdominal adhesions [Unknown]
